FAERS Safety Report 10885578 (Version 1)
Quarter: 2015Q1

REPORT INFORMATION
  Report Type: Report from Study
  Country: US (occurrence: US)
  Receive Date: 20150304
  Receipt Date: 20150304
  Transmission Date: 20150721
  Serious: No
  Sender: FDA-Public Use
  Company Number: US-ABBVIE-14P-163-1206000-00

PATIENT
  Sex: Female
  Weight: 102.15 kg

DRUGS (2)
  1. LUPRON DEPOT [Suspect]
     Active Substance: LEUPROLIDE ACETATE
     Indication: VAGINAL HAEMORRHAGE
  2. LUPRON DEPOT [Suspect]
     Active Substance: LEUPROLIDE ACETATE
     Indication: METRORRHAGIA
     Dates: start: 20140127

REACTIONS (7)
  - Irritability [Not Recovered/Not Resolved]
  - Dysphonia [Not Recovered/Not Resolved]
  - Hot flush [Unknown]
  - Insomnia [Not Recovered/Not Resolved]
  - Off label use [Not Recovered/Not Resolved]
  - Weight decreased [Not Recovered/Not Resolved]
  - Mood swings [Not Recovered/Not Resolved]
